FAERS Safety Report 19228866 (Version 3)
Quarter: 2021Q4

REPORT INFORMATION
  Report Type: Spontaneous
  Country: IT (occurrence: IT)
  Receive Date: 20210507
  Receipt Date: 20211106
  Transmission Date: 20220303
  Serious: Yes (Other)
  Sender: FDA-Public Use
  Company Number: IT-SA-2021SA144981

PATIENT
  Sex: Female

DRUGS (2)
  1. ALEMTUZUMAB [Suspect]
     Active Substance: ALEMTUZUMAB
     Indication: Relapsing-remitting multiple sclerosis
     Dosage: UNK UNK, QCY
     Route: 064
     Dates: start: 201601, end: 201601
  2. ALEMTUZUMAB [Suspect]
     Active Substance: ALEMTUZUMAB
     Indication: Maternal exposure before pregnancy

REACTIONS (9)
  - Congenital cytomegalovirus infection [Unknown]
  - Maternal exposure before pregnancy [Unknown]
  - Intraventricular haemorrhage neonatal [Unknown]
  - Foetal growth restriction [Unknown]
  - Microcephaly [Unknown]
  - Cerebral ventricle dilatation [Unknown]
  - Cerebral calcification [Unknown]
  - Cerebral cyst [Unknown]
  - Hypertonia [Unknown]

NARRATIVE: CASE EVENT DATE: 20160101
